FAERS Safety Report 9382047 (Version 1)
Quarter: 2013Q3

REPORT INFORMATION
  Report Type: Spontaneous
  Country: US (occurrence: US)
  Receive Date: 20130703
  Receipt Date: 20130703
  Transmission Date: 20140515
  Serious: Yes (Death, Other)
  Sender: FDA-Public Use
  Company Number: US-ROXANE LABORATORIES, INC.-2013-RO-01076RO

PATIENT
  Age: 10 Year
  Sex: Female
  Weight: 45 kg

DRUGS (4)
  1. DIAZEPAM [Suspect]
     Indication: MUSCLE SPASMS
  2. CODEINE/ACETAMINOPHEN [Suspect]
     Indication: PAIN
  3. MULTIVITAMIN [Concomitant]
  4. BUDESONIDE [Concomitant]
     Route: 055

REACTIONS (4)
  - Toxicity to various agents [Fatal]
  - Pulmonary oedema [Unknown]
  - Respiratory depression [Unknown]
  - Unresponsive to stimuli [None]
